FAERS Safety Report 6148479-1 (Version None)
Quarter: 2009Q2

REPORT INFORMATION
  Report Type: 
  Country: None (occurrence: None)
  Receive Date: 20090408
  Receipt Date: 20090327
  Transmission Date: 20091009
  Serious: Yes (Other)
  Sender: FDA-Public Use
  Company Number: PHHY2009GB11288

PATIENT
  Sex: Male

DRUGS (10)
  1. CLOZARIL [Suspect]
     Indication: SCHIZOPHRENIA
     Dosage: 125MG AM AND 250MG PM
     Route: 048
     Dates: start: 20010409
  2. VALPROATE SODIUM [Concomitant]
     Dosage: 400MG AM AND 600MG PM
  3. OMEPRAZOLE [Concomitant]
     Indication: DYSPEPSIA
     Dosage: 20 MG AM
     Route: 048
  4. SODIUM PICOSULFATE [Concomitant]
     Dosage: 10 MG NOCTE
     Route: 048
  5. SENNA [Concomitant]
     Dosage: 2 TABS NOCTE
  6. ATORVASTATIN [Concomitant]
     Dosage: 20MG NOCTE
     Route: 048
  7. BUMETANIDE [Concomitant]
     Dosage: 1MG AM
     Route: 048
  8. LOVAZA [Concomitant]
     Dosage: 2 MG, BID
     Route: 048
  9. LEVOTHYROXINE SODIUM [Concomitant]
     Dosage: 150 MCG AM
     Route: 048
  10. SALBUTAMOL [Concomitant]
     Dosage: 100 INHALER 2 PUFFS 4 TIMES DAILY

REACTIONS (11)
  - CENTRAL NERVOUS SYSTEM LESION [None]
  - GASTROINTESTINAL HAEMORRHAGE [None]
  - HAEMATOCRIT DECREASED [None]
  - HAEMOGLOBIN DECREASED [None]
  - LIBIDO INCREASED [None]
  - MEAN CELL HAEMOGLOBIN DECREASED [None]
  - MEAN CELL VOLUME DECREASED [None]
  - MELAENA [None]
  - OCCULT BLOOD POSITIVE [None]
  - SEBORRHOEIC DERMATITIS [None]
  - WEIGHT INCREASED [None]
